FAERS Safety Report 12956126 (Version 1)
Quarter: 2016Q4

REPORT INFORMATION
  Report Type: Spontaneous
  Country: US (occurrence: US)
  Receive Date: 20161118
  Receipt Date: 20161118
  Transmission Date: 20170207
  Serious: No
  Sender: FDA-Public Use
  Company Number: US-JNJFOC-20161016947

PATIENT
  Age: 58 Year
  Sex: Female
  Weight: 58.51 kg

DRUGS (1)
  1. TYLENOL REGULAR STRENGTH [Suspect]
     Active Substance: ACETAMINOPHEN
     Indication: HEADACHE
     Dosage: 2 TABLETS, 1X PER DAY
     Route: 048
     Dates: start: 201602

REACTIONS (1)
  - Incorrect drug administration duration [Unknown]
